FAERS Safety Report 6983146-3 (Version None)
Quarter: 2010Q3

REPORT INFORMATION
  Report Type: 
  Country: None (occurrence: None)
  Receive Date: 20100914
  Receipt Date: 20100630
  Transmission Date: 20110219
  Serious: No
  Sender: FDA-Public Use
  Company Number: US-PFIZER INC-2010082291

PATIENT
  Age: 52 Year
  Sex: Female
  Weight: 72.562 kg

DRUGS (17)
  1. LYRICA [Suspect]
     Indication: PAIN
     Dosage: 50 MG, 1X/DAY
     Route: 048
     Dates: start: 20100601
  2. LYRICA [Suspect]
     Dosage: 50 MG, 2X/DAY
     Dates: start: 20100101
  3. LAMICTAL [Concomitant]
     Indication: BIPOLAR DISORDER
     Dosage: 100 MG, 2X/DAY
     Route: 048
     Dates: start: 19980101
  4. WELLBUTRIN SR [Concomitant]
     Indication: DEPRESSION
     Dosage: 150 MG, 2X/DAY
     Route: 048
  5. GEODON [Concomitant]
     Dosage: 60 MG, 1X/DAY
     Route: 048
     Dates: start: 20100101
  6. PROZAC [Concomitant]
     Indication: DEPRESSION
     Dosage: 40 MG, 1X/DAY
     Route: 048
     Dates: start: 19900101
  7. ROZEREM [Concomitant]
     Indication: INSOMNIA
     Dosage: 8 MG, 1X/DAY
     Route: 048
     Dates: start: 20100101
  8. MOBIC [Concomitant]
     Indication: ARTHRITIS
     Dosage: 50 MG, 1X/DAY
     Route: 048
  9. PROTONIX [Concomitant]
     Indication: PROPHYLAXIS
     Dosage: 50 MG, 1X/DAY
     Route: 048
  10. BACLOFEN [Concomitant]
     Indication: MUSCLE RELAXANT THERAPY
     Dosage: 10 MG, 3X/DAY
     Route: 048
  11. TYLENOL [Concomitant]
     Indication: PAIN
     Dosage: 2000 MG, AS NEEDED
     Route: 048
  12. FLEXERIL [Concomitant]
     Indication: MUSCLE RELAXANT THERAPY
     Dosage: 20 MG, AS NEEDED
     Route: 048
  13. LIDODERM [Concomitant]
     Indication: PAIN
     Dosage: UNK
     Route: 062
  14. VOLTAREN [Concomitant]
     Indication: PAIN
     Dosage: UNK
     Route: 061
  15. RESTORIL [Concomitant]
     Indication: MUSCLE RELAXANT THERAPY
     Dosage: 30 MG, UNK
     Route: 048
  16. MIRALAX [Concomitant]
     Indication: CONSTIPATION
     Dosage: AS NEEDED
     Route: 048
  17. PERCOCET [Concomitant]
     Indication: PAIN
     Dosage: 10 MG, AS NEEDED
     Route: 048
     Dates: start: 20100616

REACTIONS (5)
  - DIZZINESS [None]
  - DRUG INEFFECTIVE [None]
  - DRY MOUTH [None]
  - NAUSEA [None]
  - VOMITING [None]
